FAERS Safety Report 9717579 (Version 1)
Quarter: 2013Q4

REPORT INFORMATION
  Report Type: Spontaneous
  Country: US (occurrence: US)
  Receive Date: 20131127
  Receipt Date: 20131127
  Transmission Date: 20140711
  Serious: No
  Sender: FDA-Public Use
  Company Number: US-GILEAD-2013-0088392

PATIENT
  Sex: Female

DRUGS (3)
  1. LETAIRIS [Suspect]
     Indication: PRODUCT USED FOR UNKNOWN INDICATION
     Dosage: 10 MG, QD
     Dates: start: 20111206
  2. TYVASO [Concomitant]
  3. REVATIO [Concomitant]

REACTIONS (5)
  - Haemorrhage [Unknown]
  - Insomnia [Unknown]
  - Swelling [Unknown]
  - Polyp [Not Recovered/Not Resolved]
  - Dyspnoea [Unknown]
